FAERS Safety Report 8261259-6 (Version None)
Quarter: 2012Q2

REPORT INFORMATION
  Report Type: 
  Country: None (occurrence: None)
  Receive Date: 20120405
  Receipt Date: 20120327
  Transmission Date: 20120825
  Serious: Yes (Other)
  Sender: FDA-Public Use
  Company Number: US-JNJFOC-20120313555

PATIENT
  Sex: Male
  Weight: 116.12 kg

DRUGS (5)
  1. COREG [Concomitant]
     Indication: BLOOD PRESSURE
     Route: 048
  2. LISINOPRIL [Concomitant]
     Indication: BLOOD PRESSURE
     Route: 048
  3. LAMICTAL [Concomitant]
     Indication: BIPOLAR DISORDER
     Route: 048
  4. RISPERDAL CONSTA [Suspect]
     Indication: SCHIZOPHRENIA
     Route: 030
     Dates: start: 20100101
  5. HYDROCHLOROTHIAZIDE [Concomitant]
     Indication: BLOOD PRESSURE
     Route: 048

REACTIONS (5)
  - FEELING ABNORMAL [None]
  - ABNORMAL DREAMS [None]
  - THROMBOSIS [None]
  - NEEDLE ISSUE [None]
  - PRODUCT QUALITY ISSUE [None]
